FAERS Safety Report 19071701 (Version 1)
Quarter: 2021Q1

REPORT INFORMATION
  Report Type: Spontaneous
  Country: US (occurrence: US)
  Receive Date: 20210329
  Receipt Date: 20210329
  Transmission Date: 20210420
  Serious: No
  Sender: FDA-Public Use
  Company Number: None

PATIENT
  Age: 75 Year
  Sex: Female
  Weight: 68.04 kg

DRUGS (4)
  1. LEVOTHYROXIN [Concomitant]
     Active Substance: LEVOTHYROXINE
  2. NYSTATIN ORAL SUSPENSION [Suspect]
     Active Substance: NYSTATIN
     Indication: CANDIDA INFECTION
     Dosage: ?          QUANTITY:1 DF DOSAGE FORM;?
     Route: 048
     Dates: start: 20210126, end: 20210201
  3. ATORVASTATIN [Concomitant]
     Active Substance: ATORVASTATIN
  4. FLINTSTONE VITAMINS [Concomitant]

REACTIONS (2)
  - COVID-19 [None]
  - Tooth discolouration [None]

NARRATIVE: CASE EVENT DATE: 20210126
